FAERS Safety Report 8397215-7 (Version None)
Quarter: 2012Q2

REPORT INFORMATION
  Report Type: 
  Country: None (occurrence: None)
  Receive Date: 20120530
  Receipt Date: 20120522
  Transmission Date: 20120825
  Serious: Yes (Hospitalization)
  Sender: FDA-Public Use
  Company Number: US-RB-040588-12

PATIENT
  Age: 53 Year
  Sex: Female

DRUGS (1)
  1. SUBOXONE [Suspect]
     Indication: PRODUCT USED FOR UNKNOWN INDICATION
     Dosage: DOSING DETAILS UNKNOWN
     Route: 065

REACTIONS (15)
  - ABDOMINAL PAIN UPPER [None]
  - FEAR [None]
  - ANXIETY [None]
  - NAUSEA [None]
  - SELF-INJURIOUS IDEATION [None]
  - DRUG WITHDRAWAL SYNDROME [None]
  - FEELING ABNORMAL [None]
  - PANIC ATTACK [None]
  - BIPOLAR I DISORDER [None]
  - RESTLESSNESS [None]
  - CHILLS [None]
  - DEPRESSION [None]
  - THERAPEUTIC RESPONSE UNEXPECTED [None]
  - SUBSTANCE ABUSE [None]
  - DIARRHOEA [None]
